FAERS Safety Report 20833452 (Version 1)
Quarter: 2022Q2

REPORT INFORMATION
  Report Type: 
  Country: None (occurrence: None)
  Receive Date: 20220516
  Receipt Date: 20220516
  Transmission Date: 20220721
  Serious: No
  Sender: FDA-Public Use
  Company Number: CN-ROCHE-3085029

PATIENT
  Age: 62 Year
  Weight: 72 kg

DRUGS (17)
  1. ATEZOLIZUMAB [Suspect]
     Active Substance: ATEZOLIZUMAB
     Dosage: START DATE OF MOST RECENT DOSE OF STUDY DRUG PRIOR TO AE/SAE ON 13/APR/2022.
     Dates: start: 20210813
  2. BEVACIZUMAB [Suspect]
     Active Substance: BEVACIZUMAB
     Dosage: ON 02/MAR/2022, RECEIVED MOST RECENT DOSE 1110 MG PRIOR TO AE/SAE
     Dates: start: 20210813
  3. CARBOPLATIN [Suspect]
     Active Substance: CARBOPLATIN
     Dosage: DOSE LAST STUDY DRUG ADMIN PRIOR AE IS 450 MG ON 11/NOV/2021
     Dates: start: 20210813
  4. PEMETREXED [Suspect]
     Active Substance: PEMETREXED
     Dosage: DOSE LAST STUDY DRUG ADMIN PRIOR AE IS 450 MG ON 13/APR/2022
     Dates: start: 20210813
  5. FOLIC ACID [Concomitant]
     Active Substance: FOLIC ACID
     Dates: start: 20210721
  6. NIFEDIPINE [Concomitant]
     Active Substance: NIFEDIPINE
     Dates: start: 20210721
  7. SHENG XUE XIAO BAN [Concomitant]
     Dates: start: 20210903
  8. DEXAMETHASONE [Concomitant]
     Active Substance: DEXAMETHASONE
     Dates: start: 20220412, end: 20220414
  9. BICYCLOL [Concomitant]
     Active Substance: BICYCLOL
     Dates: start: 20220324, end: 20220326
  10. THROMBOPOIETIN [Concomitant]
     Active Substance: THROMBOPOIETIN
     Dates: start: 20220331, end: 20220401
  11. THROMBOPOIETIN [Concomitant]
     Active Substance: THROMBOPOIETIN
     Dates: start: 20220419, end: 20220422
  12. THROMBOPOIETIN [Concomitant]
     Active Substance: THROMBOPOIETIN
     Dates: start: 20220424, end: 20220428
  13. ACETYLCYSTEINE [Concomitant]
     Active Substance: ACETYLCYSTEINE
     Dates: start: 20220413, end: 20220413
  14. FAMOTIDINE [Concomitant]
     Active Substance: FAMOTIDINE
     Dates: start: 20220413, end: 20220413
  15. FAMOTIDINE [Concomitant]
     Active Substance: FAMOTIDINE
     Dates: start: 20220428, end: 20220505
  16. TROPISETRON HYDROCHLORIDE AND SODIUM CHLORIDE [Concomitant]
     Dates: start: 20220413, end: 20220413
  17. MESALAMINE [Concomitant]
     Active Substance: MESALAMINE
     Dates: start: 20220420

REACTIONS (1)
  - Colitis [None]

NARRATIVE: CASE EVENT DATE: 20220424
